FAERS Safety Report 8185486-1 (Version None)
Quarter: 2012Q1

REPORT INFORMATION
  Report Type: 
  Country: None (occurrence: None)
  Receive Date: 20120305
  Receipt Date: 20120228
  Transmission Date: 20120608
  Serious: Yes (Other)
  Sender: FDA-Public Use
  Company Number: DE-PFIZER INC-2012052262

PATIENT
  Age: 56 Year
  Sex: Male

DRUGS (1)
  1. ZIPRASIDONE HYDROCHLORIDE [Suspect]
     Dosage: 160 MG, DAILY

REACTIONS (3)
  - FATIGUE [None]
  - PARKINSON'S DISEASE [None]
  - TOOTHACHE [None]
